FAERS Safety Report 6661916-9 (Version None)
Quarter: 2010Q1

REPORT INFORMATION
  Report Type: 
  Country: None (occurrence: None)
  Receive Date: 20100331
  Receipt Date: 20091116
  Transmission Date: 20100710
  Serious: Yes (Other)
  Sender: FDA-Public Use
  Company Number: US-BRISTOL-MYERS SQUIBB COMPANY-14806392

PATIENT
  Age: 88 Year
  Sex: Male

DRUGS (1)
  1. ERBITUX [Suspect]
     Indication: COLORECTAL CANCER METASTATIC
     Route: 042
     Dates: start: 20090923

REACTIONS (6)
  - BLOOD PRESSURE IMMEASURABLE [None]
  - COMA [None]
  - DYSPNOEA [None]
  - HEART RATE DECREASED [None]
  - INCONTINENCE [None]
  - MUSCLE RIGIDITY [None]
